FAERS Safety Report 25204917 (Version 2)
Quarter: 2025Q2

REPORT INFORMATION
  Report Type: Spontaneous
  Country: FR (occurrence: FR)
  Receive Date: 20250416
  Receipt Date: 20250419
  Transmission Date: 20250716
  Serious: No
  Sender: SANDOZ
  Company Number: FR-SANDOZ-SDZ2025FR023456

PATIENT
  Age: 15 Year
  Sex: Male

DRUGS (1)
  1. OMNITROPE [Suspect]
     Active Substance: SOMATROPIN
     Indication: Growth disorder
     Dosage: 1.8 MG, QD
     Route: 065

REACTIONS (3)
  - Drug dose omission by device [Unknown]
  - Device malfunction [Unknown]
  - Device use issue [Unknown]

NARRATIVE: CASE EVENT DATE: 20250409
